FAERS Safety Report 12172469 (Version 1)
Quarter: 2016Q1

REPORT INFORMATION
  Report Type: Spontaneous
  Country: US (occurrence: US)
  Receive Date: 20160311
  Receipt Date: 20160311
  Transmission Date: 20160526
  Serious: Yes (Hospitalization, Other)
  Sender: FDA-Public Use
  Company Number: US-BAYER-2016-042698

PATIENT
  Age: 42 Year
  Sex: Female

DRUGS (1)
  1. MIRENA [Suspect]
     Active Substance: LEVONORGESTREL
     Dosage: 20 MCG/24HR, CONT
     Route: 015

REACTIONS (11)
  - Uterine rupture [Recovered/Resolved]
  - Complication of device removal [None]
  - Placental transfusion syndrome [Recovered/Resolved]
  - Vomiting [Recovered/Resolved]
  - Pregnancy with contraceptive device [Recovered/Resolved]
  - Premature rupture of membranes [Recovered/Resolved]
  - Abdominal pain upper [Recovered/Resolved]
  - Device breakage [None]
  - Uterine haemorrhage [Recovered/Resolved]
  - Uterine perforation [Recovered/Resolved]
  - Device difficult to use [None]
